FAERS Safety Report 9868890 (Version 3)
Quarter: 2014Q1

REPORT INFORMATION
  Report Type: Report from Study
  Country: AT (occurrence: AT)
  Receive Date: 20140204
  Receipt Date: 20140212
  Transmission Date: 20141002
  Serious: Yes (Hospitalization)
  Sender: FDA-Public Use
  Company Number: AT-INCYTE CORPORATION-2013IN002749

PATIENT
  Sex: 0

DRUGS (8)
  1. INC424 [Suspect]
     Indication: MYELOFIBROSIS
     Dosage: 15 MG, BID
     Route: 048
     Dates: start: 20130826, end: 20131014
  2. INC424 [Suspect]
     Dosage: 10 MG, BID
     Route: 048
     Dates: start: 20131015, end: 20131122
  3. BKM120 [Suspect]
     Indication: MYELOFIBROSIS
     Dosage: 80 MG, QD
     Route: 048
     Dates: start: 20130826, end: 20131014
  4. BKM120 [Suspect]
     Dosage: 60 MG, QD
     Route: 048
     Dates: start: 20131015, end: 20131114
  5. THYREX [Concomitant]
     Dosage: UNK
     Dates: start: 20060726
  6. EXJADE [Concomitant]
     Dosage: UNK
     Dates: start: 20110620
  7. ZOFRAN [Concomitant]
     Dosage: UNK
     Dates: start: 20130826
  8. VALTREX [Concomitant]
     Dosage: UNK
     Dates: start: 20130821

REACTIONS (7)
  - Mental disorder due to a general medical condition [Recovered/Resolved]
  - Memory impairment [Recovered/Resolved]
  - Quality of life decreased [Recovered/Resolved]
  - Chills [Recovered/Resolved]
  - Pyrexia [Recovered/Resolved]
  - Decreased appetite [Recovered/Resolved]
  - General physical health deterioration [Recovered/Resolved]
